FAERS Safety Report 14831684 (Version 1)
Quarter: 2018Q2

REPORT INFORMATION
  Report Type: Report from Study
  Country: US (occurrence: US)
  Receive Date: 20180501
  Receipt Date: 20180501
  Transmission Date: 20180711
  Serious: Yes (Hospitalization)
  Sender: FDA-Public Use
  Company Number: US-ROCHE-1594566

PATIENT
  Sex: Male
  Weight: 20.5 kg

DRUGS (11)
  1. NUTROPIN AQ [Suspect]
     Active Substance: SOMATROPIN
     Indication: ENDOCRINE DISORDER
     Route: 058
  2. QVAR [Concomitant]
     Active Substance: BECLOMETHASONE DIPROPIONATE
     Route: 065
  3. TESTOSTERONE. [Concomitant]
     Active Substance: TESTOSTERONE
  4. NUTROPIN AQ [Suspect]
     Active Substance: SOMATROPIN
     Indication: HYPOPITUITARISM
  5. LEVOTHYROXINE. [Concomitant]
     Active Substance: LEVOTHYROXINE
     Route: 048
  6. SOLU-CORTEF [Concomitant]
     Active Substance: HYDROCORTISONE SODIUM SUCCINATE
     Route: 030
  7. PEDIASURE [Concomitant]
     Active Substance: VITAMINS
  8. FERROUS SULFATE. [Concomitant]
     Active Substance: FERROUS SULFATE
     Route: 065
  9. CORTEF [Concomitant]
     Active Substance: HYDROCORTISONE
     Route: 048
  10. ALBUTEROL. [Concomitant]
     Active Substance: ALBUTEROL
     Dosage: AS REQUIRED
     Route: 065
  11. NUTROPIN AQ [Suspect]
     Active Substance: SOMATROPIN
     Indication: HYPOGLYCAEMIA

REACTIONS (30)
  - Monocyte count increased [Unknown]
  - Blood bicarbonate decreased [Unknown]
  - Blood iron decreased [Unknown]
  - Blood glucose increased [Unknown]
  - Haemoglobin decreased [Unknown]
  - Red blood cell count decreased [Unknown]
  - Blood sodium decreased [Unknown]
  - Carbon dioxide decreased [Unknown]
  - Anaemia [Not Recovered/Not Resolved]
  - Blood thyroid stimulating hormone decreased [Unknown]
  - Insulin-like growth factor increased [Unknown]
  - Nuclear magnetic resonance imaging brain abnormal [Unknown]
  - Blood creatinine decreased [Unknown]
  - Alanine aminotransferase decreased [Unknown]
  - Oxygen saturation decreased [Unknown]
  - Reticulocyte percentage abnormal [Unknown]
  - Neutrophil percentage increased [Unknown]
  - Lymphocyte count decreased [Unknown]
  - Vitamin D decreased [Unknown]
  - Blood alkaline phosphatase decreased [Unknown]
  - Cortisol decreased [Unknown]
  - Bone density increased [Unknown]
  - Haematocrit decreased [Unknown]
  - PCO2 decreased [Unknown]
  - Transferrin saturation decreased [Unknown]
  - Growth retardation [Unknown]
  - Thyroxine free decreased [Unknown]
  - Red blood cell sedimentation rate increased [Unknown]
  - White blood cell count decreased [Unknown]
  - Monocyte percentage increased [Unknown]
